FAERS Safety Report 4371799-8 (Version None)
Quarter: 2004Q2

REPORT INFORMATION
  Report Type: 
  Country: None (occurrence: None)
  Receive Date: 20040602
  Receipt Date: 20040518
  Transmission Date: 20050107
  Serious: Yes (Death, Hospitalization, Other)
  Sender: FDA-Public Use
  Company Number: 04-175-0092

PATIENT
  Age: 61 Year
  Sex: Male

DRUGS (1)
  1. DOXORUBICIN, UNKNOWN STRENGTH, BEN VENUE LABS [Suspect]
     Indication: HEPATIC NEOPLASM MALIGNANT
     Dosage: 60MG/M^2 IV ONCE
     Route: 042
     Dates: start: 20040426, end: 20040426

REACTIONS (2)
  - CARDIO-RESPIRATORY ARREST [None]
  - COMA [None]
